FAERS Safety Report 20291676 (Version 1)
Quarter: 2022Q1

REPORT INFORMATION
  Report Type: Spontaneous
  Country: US (occurrence: None)
  Receive Date: 20220104
  Receipt Date: 20220104
  Transmission Date: 20220423
  Serious: Yes (Hospitalization)
  Sender: FDA-Public Use
  Company Number: None

PATIENT
  Age: 23 Year
  Sex: Female
  Weight: 37.5 kg

DRUGS (6)
  1. METHOTREXATE [Suspect]
     Active Substance: METHOTREXATE
     Dates: start: 20211214
  2. CYCLOPHOSPHAMIDE [Suspect]
     Active Substance: CYCLOPHOSPHAMIDE
     Dates: end: 20211130
  3. CYTARABINE [Suspect]
     Active Substance: CYTARABINE
     Dates: end: 20211210
  4. MERCAPTOPURINE [Suspect]
     Active Substance: MERCAPTOPURINE
     Dates: end: 20211213
  5. ONCASPAR [Suspect]
     Active Substance: PEGASPARGASE
     Dates: end: 20211214
  6. VINCRISTINE SULFATE [Suspect]
     Active Substance: VINCRISTINE SULFATE
     Dates: end: 20211214

REACTIONS (5)
  - Neurotoxicity [None]
  - Neurological decompensation [None]
  - Toxicity to various agents [None]
  - Heart rate irregular [None]
  - Blood pressure fluctuation [None]

NARRATIVE: CASE EVENT DATE: 20211228
